FAERS Safety Report 13938141 (Version 3)
Quarter: 2018Q2

REPORT INFORMATION
  Report Type: Spontaneous
  Country: US (occurrence: US)
  Receive Date: 20170905
  Receipt Date: 20180618
  Transmission Date: 20180711
  Serious: No
  Sender: FDA-Public Use
  Company Number: US-ACTELION-A-US2017-158962

PATIENT
  Age: 48 Year
  Sex: Male

DRUGS (1)
  1. OPSUMIT [Suspect]
     Active Substance: MACITENTAN
     Indication: PULMONARY ARTERIAL HYPERTENSION
     Dosage: 10 MG, QD
     Route: 048
     Dates: start: 20170831

REACTIONS (6)
  - Dyspnoea [Unknown]
  - Dizziness [Unknown]
  - Drug dose omission [Recovered/Resolved]
  - Pain [Unknown]
  - Diarrhoea [Unknown]
  - Flushing [Unknown]
